FAERS Safety Report 6965057-2 (Version None)
Quarter: 2010Q3

REPORT INFORMATION
  Report Type: 
  Country: None (occurrence: None)
  Receive Date: 20100903
  Receipt Date: 20100826
  Transmission Date: 20110219
  Serious: Yes (Death, Disabling)
  Sender: FDA-Public Use
  Company Number: DK-BAYER-201037375GPV

PATIENT
  Age: 47 Year
  Sex: Male

DRUGS (1)
  1. PARAMAGNETIC CONTRAST MEDIA -UNK MAH [Suspect]
     Indication: SCAN WITH CONTRAST
     Dates: start: 20070912, end: 20070912

REACTIONS (9)
  - ABASIA [None]
  - DEATH [None]
  - JOINT STIFFNESS [None]
  - MUSCULOSKELETAL STIFFNESS [None]
  - NEPHROGENIC SYSTEMIC FIBROSIS [None]
  - PAIN IN EXTREMITY [None]
  - SENSORY DISTURBANCE [None]
  - SKIN DISORDER [None]
  - SKIN HYPERTROPHY [None]
